FAERS Safety Report 6339770-4 (Version None)
Quarter: 2009Q3

REPORT INFORMATION
  Report Type: 
  Country: None (occurrence: None)
  Receive Date: 20090903
  Receipt Date: 20090824
  Transmission Date: 20100115
  Serious: Yes (Other)
  Sender: FDA-Public Use
  Company Number: US-ELI_LILLY_AND_COMPANY-US200908005311

PATIENT
  Age: 64 Year
  Sex: Female

DRUGS (9)
  1. CYMBALTA [Suspect]
     Dosage: 60 MG, DAILY (1/D)
     Route: 048
  2. BACLOFEN [Concomitant]
  3. METFORMIN HCL [Concomitant]
  4. TIZANIDINE HCL [Concomitant]
  5. OXYBUTIN [Concomitant]
  6. LEVAQUIN [Concomitant]
  7. DOXYCYCLINE [Concomitant]
  8. VITAMIN D [Concomitant]
  9. CALCIUM [Concomitant]

REACTIONS (1)
  - LOSS OF CONSCIOUSNESS [None]
